FAERS Safety Report 24079094 (Version 2)
Quarter: 2024Q3

REPORT INFORMATION
  Report Type: Spontaneous
  Country: CA (occurrence: CA)
  Receive Date: 20240711
  Receipt Date: 20240904
  Transmission Date: 20241016
  Serious: Yes (Other)
  Sender: PFIZER
  Company Number: CA-PFIZER INC-202400208993

PATIENT
  Age: 81 Year
  Sex: Male

DRUGS (6)
  1. RUXIENCE [Suspect]
     Active Substance: RITUXIMAB-PVVR
     Indication: Rheumatoid arthritis
     Dosage: 1000MG, DAY 1 AND 15
     Route: 042
     Dates: start: 20220314, end: 20220328
  2. RUXIENCE [Suspect]
     Active Substance: RITUXIMAB-PVVR
     Dosage: 1000MG, DAY 1 AND 15
     Route: 042
     Dates: start: 20220926, end: 20221012
  3. RUXIENCE [Suspect]
     Active Substance: RITUXIMAB-PVVR
     Dosage: 1000MG, DAY 1 AND 15
     Route: 042
     Dates: start: 20230405, end: 20230419
  4. RUXIENCE [Suspect]
     Active Substance: RITUXIMAB-PVVR
     Dosage: 1000MG, DAY 1 AND 15
     Route: 042
     Dates: start: 20231016, end: 20231030
  5. RUXIENCE [Suspect]
     Active Substance: RITUXIMAB-PVVR
     Dosage: 1000 MG, DAY 1 AND 15
     Route: 042
     Dates: start: 20240408, end: 20240422
  6. ETANERCEPT [Concomitant]
     Active Substance: ETANERCEPT
     Dosage: 1 DF

REACTIONS (1)
  - Pulmonary fibrosis [Unknown]
